FAERS Safety Report 9270063 (Version 1)
Quarter: 2013Q2

REPORT INFORMATION
  Report Type: Spontaneous
  Country: JP (occurrence: JP)
  Receive Date: 20130503
  Receipt Date: 20130503
  Transmission Date: 20140414
  Serious: Yes (Other)
  Sender: FDA-Public Use
  Company Number: JP-PFIZER INC-2013138439

PATIENT
  Age: 75 Year
  Sex: Female

DRUGS (3)
  1. CISPLATIN [Suspect]
     Indication: OSTEOSARCOMA
     Dosage: ADMINISTERED AT 2-MONTH INTERVALS
     Route: 065
  2. ETOPOSIDE [Suspect]
     Indication: OSTEOSARCOMA
     Dosage: ADMINISTERED AT 2-MONTH INTERVALS
     Route: 065
  3. IFOSFAMIDE [Suspect]
     Indication: OSTEOSARCOMA
     Dosage: ADMINISTERED AT 2-MONTH INTERVALS
     Route: 065

REACTIONS (1)
  - Pancytopenia [Unknown]
